FAERS Safety Report 10611127 (Version 4)
Quarter: 2016Q4

REPORT INFORMATION
  Report Type: Spontaneous
  Country: US (occurrence: US)
  Receive Date: 20141126
  Receipt Date: 20161017
  Transmission Date: 20170206
  Serious: No
  Sender: FDA-Public Use
  Company Number: US-GLAXOSMITHKLINE-A1085137A

PATIENT
  Sex: Female

DRUGS (10)
  1. NAMENDA [Concomitant]
     Active Substance: MEMANTINE HYDROCHLORIDE
  2. FLOVENT [Suspect]
     Active Substance: FLUTICASONE PROPIONATE
     Indication: EMPHYSEMA
     Dosage: 2 PUFF(S), 1D
     Route: 055
     Dates: start: 2004
  3. ROSUVASTATIN. [Concomitant]
     Active Substance: ROSUVASTATIN
  4. NEXIUM [Concomitant]
     Active Substance: ESOMEPRAZOLE MAGNESIUM
  5. VENLAFAXINE [Concomitant]
     Active Substance: VENLAFAXINE HYDROCHLORIDE
  6. FLOVENT [Suspect]
     Active Substance: FLUTICASONE PROPIONATE
     Indication: EMPHYSEMA
     Dosage: ROTA 100MCG
     Route: 055
     Dates: start: 2014
  7. TRAZODONE [Concomitant]
     Active Substance: TRAZODONE HYDROCHLORIDE
  8. DONEPEZIL. [Concomitant]
     Active Substance: DONEPEZIL
  9. CITALOPRAM [Concomitant]
     Active Substance: CITALOPRAM HYDROBROMIDE
  10. LISINOPRIL. [Concomitant]
     Active Substance: LISINOPRIL

REACTIONS (5)
  - Amnesia [Unknown]
  - Dyspnoea [Unknown]
  - Dyspnoea [Unknown]
  - Memory impairment [Unknown]
  - Gait disturbance [Unknown]

NARRATIVE: CASE EVENT DATE: 2010
